FAERS Safety Report 15958372 (Version 1)
Quarter: 2019Q1

REPORT INFORMATION
  Report Type: Report from Study
  Country: US (occurrence: US)
  Receive Date: 20190213
  Receipt Date: 20190213
  Transmission Date: 20190417
  Serious: Yes (Hospitalization, Other)
  Sender: FDA-Public Use
  Company Number: US-EXELIXIS-XL18419018669

PATIENT
  Age: 56 Year
  Sex: Female
  Weight: 106 kg

DRUGS (9)
  1. ALBUTEROL. [Concomitant]
     Active Substance: ALBUTEROL
  2. NIVOLUMAB [Suspect]
     Active Substance: NIVOLUMAB
     Indication: TRIPLE NEGATIVE BREAST CANCER
     Dosage: 480 MG, Q4WEEKS
     Route: 042
     Dates: start: 20180727, end: 20181116
  3. XL184 [Suspect]
     Active Substance: CABOZANTINIB
     Indication: TRIPLE NEGATIVE BREAST CANCER
     Dosage: 20 MG, QD
     Route: 048
     Dates: start: 20180727, end: 20181214
  4. LEVOTHYROXINE. [Concomitant]
     Active Substance: LEVOTHYROXINE
  5. INSULIN [Concomitant]
     Active Substance: INSULIN NOS
  6. CLOBETASOL [Concomitant]
     Active Substance: CLOBETASOL
  7. CLARITIN [Concomitant]
     Active Substance: LORATADINE
  8. DEXTROSE. [Concomitant]
     Active Substance: DEXTROSE
  9. MAGNESIUM SULFATE. [Concomitant]
     Active Substance: MAGNESIUM SULFATE

REACTIONS (3)
  - Generalised oedema [Unknown]
  - Pulmonary embolism [Unknown]
  - Pleural effusion [Not Recovered/Not Resolved]

NARRATIVE: CASE EVENT DATE: 20190201
